FAERS Safety Report 21349574 (Version 3)
Quarter: 2023Q1

REPORT INFORMATION
  Report Type: Spontaneous
  Country: CO (occurrence: CO)
  Receive Date: 20220919
  Receipt Date: 20230113
  Transmission Date: 20230418
  Serious: Yes (Other)
  Sender: FDA-Public Use
  Company Number: CO-AMGEN-COLSP2021058641

PATIENT
  Age: 39 Year
  Sex: Female
  Weight: 69 kg

DRUGS (20)
  1. MVASI [Suspect]
     Active Substance: BEVACIZUMAB-AWWB
     Indication: Cervix carcinoma
     Dosage: 1035 MILLIGRAM, QD,BOLUS, FOR 90 MIN
     Route: 042
     Dates: start: 20210329
  2. MVASI [Suspect]
     Active Substance: BEVACIZUMAB-AWWB
     Dosage: 1050 MILLIGRAM, QD
     Route: 040
     Dates: start: 20220525
  3. PACLITAXEL [Concomitant]
     Active Substance: PACLITAXEL
     Indication: Cervix carcinoma
     Dosage: 315 MILLIGRAM,INFUSION, FOR 5 HOURS
     Route: 042
     Dates: start: 20210329
  4. CARBOPLATIN [Concomitant]
     Active Substance: CARBOPLATIN
     Indication: Cervix carcinoma
     Dosage: 643.62 MILLIGRAM, QD, INFUSION, FOR 2 HOURS
     Route: 042
     Dates: start: 20210329
  5. FOSAPREPITANT [Concomitant]
     Active Substance: FOSAPREPITANT
     Indication: Cervix carcinoma
     Dosage: 150 MILLIGRAM, QD,BOLUS, FOR 0 MIN
     Route: 042
     Dates: start: 20210329
  6. PALONOSETRON [Concomitant]
     Active Substance: PALONOSETRON
     Indication: Cervix carcinoma
     Dosage: 0.25 MILLIGRAM, QD,BOLUS, FOR 0 MIN.
     Route: 042
     Dates: start: 20210329
  7. DEXAMETASONA [DEXAMETHASONE PHOSPHATE] [Concomitant]
     Indication: Cervix carcinoma
     Dosage: 16 MILLIGRAM, QD,BOLUS, FOR 0 MIN
     Route: 042
     Dates: start: 20210329
  8. DEXAMETASONA [DEXAMETHASONE PHOSPHATE] [Concomitant]
     Dosage: 8 MILLIGRAM/2 ML, BOLUS,FOR2 MIN
     Route: 030
     Dates: start: 20220823
  9. DIFENHIDRAMINA CLORHIDRATO [Concomitant]
     Indication: Cervix carcinoma
     Dosage: 10 MILLIGRAM, QD,BOLUS, FOR 0 MIN
     Route: 042
     Dates: start: 20210329
  10. LOSARTAN [Concomitant]
     Active Substance: LOSARTAN
     Indication: Cardiovascular event prophylaxis
     Dosage: 50 MILLIGRAM, QD FOR 30 DAY
     Dates: start: 20210305
  11. SERTRALINE [Concomitant]
     Active Substance: SERTRALINE HYDROCHLORIDE
     Dosage: 50 MILLIGRAM, QD FOR 30 DAYS
     Route: 048
  12. TRAZODONE HYDROCHLORIDE [Concomitant]
     Active Substance: TRAZODONE HYDROCHLORIDE
     Dosage: 50 MILLIGRAM, QD FOR 30 DAY
     Route: 048
  13. ONDANSETRON [Concomitant]
     Active Substance: ONDANSETRON
     Dosage: 16 MILLIGRAM, 8 MG/4 ML
     Route: 042
  14. ONDANSETRON [Concomitant]
     Active Substance: ONDANSETRON
     Dosage: 8 MILLIGRAM, QD, BOLUS, FOR 0 MIN
     Route: 040
     Dates: start: 20220525
  15. ONDANSETRON [Concomitant]
     Active Substance: ONDANSETRON
     Dosage: 8 MILLIGRAM, PER 4ML (2MG/ML) QD, BOLUS, FOR2 MIN
     Route: 042
     Dates: start: 20220823
  16. ONDANSETRON [Concomitant]
     Active Substance: ONDANSETRON
     Dosage: 4 MILLIGRAM, Q8H
     Route: 048
     Dates: start: 20220823
  17. TOPOTECAN [Concomitant]
     Active Substance: TOPOTECAN HYDROCHLORIDE
     Dosage: 75 MILLIGRAM
     Route: 042
  18. PEMETREXED [Concomitant]
     Active Substance: PEMETREXED
     Indication: Cervix carcinoma
     Dosage: 500 MILLIGRAM, QD, INFUSION, FOR 2 HOURS
     Route: 042
     Dates: start: 20220823
  19. SODIUM PICOSULFATE [Concomitant]
     Active Substance: SODIUM PICOSULFATE
     Indication: Cervix carcinoma
     Dosage: 7.5 MILLIGRAM, QD
     Route: 048
     Dates: start: 20220823
  20. VITAMIN B12 [Concomitant]
     Active Substance: CYANOCOBALAMIN
     Indication: Cervix carcinoma
     Dosage: 1 AMPOULE EVERY 1 DAY
     Route: 030
     Dates: start: 20220525

REACTIONS (10)
  - Adenocarcinoma of the cervix [Unknown]
  - Obstructive nephropathy [Unknown]
  - Vaginal discharge [Not Recovered/Not Resolved]
  - Dry throat [Recovering/Resolving]
  - Odynophagia [Recovering/Resolving]
  - Pain in extremity [Recovering/Resolving]
  - Headache [Recovering/Resolving]
  - Abdominal pain [Not Recovered/Not Resolved]
  - Pelvic pain [Recovering/Resolving]
  - Nausea [Not Recovered/Not Resolved]

NARRATIVE: CASE EVENT DATE: 20210413
